FAERS Safety Report 10156888 (Version 1)
Quarter: 2014Q2

REPORT INFORMATION
  Report Type: Spontaneous
  Country: US (occurrence: US)
  Receive Date: 20140507
  Receipt Date: 20140507
  Transmission Date: 20141212
  Serious: Yes (Death)
  Sender: FDA-Public Use
  Company Number: US-IAC KOREA XML-USA-2014-0113522

PATIENT
  Sex: Male

DRUGS (1)
  1. BUTRANS [Suspect]
     Indication: MULTIPLE SCLEROSIS
     Route: 062

REACTIONS (1)
  - Death [Fatal]
